FAERS Safety Report 25151388 (Version 2)
Quarter: 2025Q2

REPORT INFORMATION
  Report Type: Report from Study
  Country: CA (occurrence: CA)
  Receive Date: 20250402
  Receipt Date: 20250506
  Transmission Date: 20250717
  Serious: Yes (Hospitalization, Other)
  Sender: ALEXION PHARMACEUTICALS
  Company Number: CA-AstraZeneca-CH-00830354A

PATIENT
  Age: 77 Year
  Weight: 72 kg

DRUGS (4)
  1. ANIFROLUMAB [Suspect]
     Active Substance: ANIFROLUMAB
     Indication: Systemic lupus erythematosus
  2. PREDNISONE [Concomitant]
     Active Substance: PREDNISONE
     Route: 065
  3. HYDROXYCHLOROQUINE [Concomitant]
     Active Substance: HYDROXYCHLOROQUINE
  4. METHOTREXATE [Concomitant]
     Active Substance: METHOTREXATE
     Dosage: 20 MILLIGRAM, QW
     Route: 065

REACTIONS (6)
  - Cough [Recovering/Resolving]
  - Respiratory syncytial virus infection [Recovered/Resolved]
  - Pulmonary congestion [Recovering/Resolving]
  - Respiratory tract infection [Unknown]
  - Palpitations [Recovered/Resolved]
  - Product dose omission issue [Unknown]
